FAERS Safety Report 5401838-4 (Version None)
Quarter: 2007Q3

REPORT INFORMATION
  Report Type: 
  Country: None (occurrence: None)
  Receive Date: 20070726
  Receipt Date: 20070720
  Transmission Date: 20080115
  Serious: Yes (Death, Hospitalization)
  Sender: FDA-Public Use
  Company Number: 2007SP006880

PATIENT
  Age: 65 Year
  Sex: Male
  Weight: 93 kg

DRUGS (3)
  1. TEMODAL [Suspect]
     Indication: DRUG USE FOR UNKNOWN INDICATION
     Dosage: 200 MG; ; PO
     Route: 048
     Dates: start: 20070312, end: 20070401
  2. CYCLIZINE [Concomitant]
  3. WARFARIN SODIUM [Concomitant]

REACTIONS (8)
  - BACILLUS INFECTION [None]
  - CELLULITIS [None]
  - CULTURE WOUND POSITIVE [None]
  - GENERAL PHYSICAL HEALTH DETERIORATION [None]
  - GLIOBLASTOMA [None]
  - MALIGNANT NEOPLASM PROGRESSION [None]
  - PSEUDOMONAS INFECTION [None]
  - SEPSIS [None]
